FAERS Safety Report 13090590 (Version 1)
Quarter: 2017Q1

REPORT INFORMATION
  Report Type: Spontaneous
  Country: KR (occurrence: KR)
  Receive Date: 20170105
  Receipt Date: 20170105
  Transmission Date: 20170428
  Serious: Yes (Hospitalization, Other)
  Sender: FDA-Public Use
  Company Number: KR-IMPAX LABORATORIES, INC-2016-IPXL-02461

PATIENT
  Age: 32 Year
  Sex: Female
  Weight: 47 kg

DRUGS (8)
  1. EPHEDRINE. [Concomitant]
     Active Substance: EPHEDRINE
     Indication: RESUSCITATION
     Dosage: 40 MG, UNK
     Route: 042
  2. HYDROCORTISONE. [Concomitant]
     Active Substance: HYDROCORTISONE
     Indication: PRODUCT USED FOR UNKNOWN INDICATION
     Dosage: 200 MG, UNK
     Route: 042
  3. MIDAZOLAM [Concomitant]
     Active Substance: MIDAZOLAM HYDROCHLORIDE
     Dosage: UNK
     Route: 042
  4. ALFENTANIL. [Concomitant]
     Active Substance: ALFENTANIL
     Indication: SEDATIVE THERAPY
     Dosage: UNK
     Route: 042
  5. OXYGEN. [Concomitant]
     Active Substance: OXYGEN
     Indication: RESUSCITATION
     Dosage: 100 %, UNK
     Route: 065
  6. MIDAZOLAM [Concomitant]
     Active Substance: MIDAZOLAM HYDROCHLORIDE
     Indication: SEDATIVE THERAPY
     Dosage: 3 MG, UNK
     Route: 042
  7. ADRENACLICK [Suspect]
     Active Substance: EPINEPHRINE
     Indication: ANAPHYLACTIC REACTION
     Dosage: 1 MG, UNK
     Route: 042
  8. HARTMANN^S SOLUTION [Concomitant]
     Active Substance: CALCIUM CHLORIDE\POTASSIUM CHLORIDE\SODIUM CHLORIDE\SODIUM LACTATE
     Indication: RESUSCITATION
     Dosage: UNK
     Route: 065

REACTIONS (1)
  - Stress cardiomyopathy [Recovered/Resolved]
